FAERS Safety Report 7509864-6 (Version None)
Quarter: 2011Q2

REPORT INFORMATION
  Report Type: 
  Country: None (occurrence: None)
  Receive Date: 20110527
  Receipt Date: 20110520
  Transmission Date: 20111010
  Serious: Yes (Other)
  Sender: FDA-Public Use
  Company Number: B0720879A

PATIENT
  Age: 7 Year
  Sex: Male

DRUGS (1)
  1. MALARONE [Suspect]
     Indication: MALARIA PROPHYLAXIS
     Dosage: 2TAB PER DAY
     Route: 048
     Dates: start: 20110407

REACTIONS (6)
  - BLISTER [None]
  - ABNORMAL BEHAVIOUR [None]
  - VARICELLA [None]
  - VISUAL IMPAIRMENT [None]
  - LETHARGY [None]
  - MALAISE [None]
